FAERS Safety Report 7082835-2 (Version None)
Quarter: 2010Q4

REPORT INFORMATION
  Report Type: 
  Country: None (occurrence: None)
  Receive Date: 20101104
  Receipt Date: 20100430
  Transmission Date: 20110411
  Serious: No
  Sender: FDA-Public Use
  Company Number: A0857493A

PATIENT
  Sex: Male

DRUGS (2)
  1. VERDESO [Suspect]
     Route: 061
     Dates: start: 20100428
  2. KETOCONAZOLE SHAMPOO [Concomitant]

REACTIONS (1)
  - ALOPECIA [None]
